FAERS Safety Report 25353378 (Version 2)
Quarter: 2025Q2

REPORT INFORMATION
  Report Type: Report from Study
  Country: CO (occurrence: CO)
  Receive Date: 20250523
  Receipt Date: 20250527
  Transmission Date: 20250717
  Serious: Yes (Other)
  Sender: MERCK SHARP & DOHME LLC
  Company Number: CO-009507513-2269176

PATIENT
  Age: 64 Year
  Sex: Female

DRUGS (4)
  1. KEYTRUDA [Suspect]
     Active Substance: PEMBROLIZUMAB
     Indication: Head and neck cancer
     Route: 042
     Dates: start: 20241023, end: 20241023
  2. KEYTRUDA [Suspect]
     Active Substance: PEMBROLIZUMAB
     Indication: Head and neck cancer
     Route: 042
     Dates: start: 20250313, end: 20250313
  3. KEYTRUDA [Suspect]
     Active Substance: PEMBROLIZUMAB
     Indication: Head and neck cancer
     Dosage: CYCLE 4
     Route: 042
     Dates: start: 20250213, end: 20250213
  4. KEYTRUDA [Suspect]
     Active Substance: PEMBROLIZUMAB
     Indication: Head and neck cancer
     Dosage: CYCLE 6
     Route: 042
     Dates: start: 20250515, end: 20250515

REACTIONS (1)
  - Mandibular mass [Recovering/Resolving]

NARRATIVE: CASE EVENT DATE: 20250101
